FAERS Safety Report 9446092 (Version 1)
Quarter: 2013Q3

REPORT INFORMATION
  Report Type: Spontaneous
  Country: US (occurrence: US)
  Receive Date: 20130807
  Receipt Date: 20130807
  Transmission Date: 20140515
  Serious: No
  Sender: FDA-Public Use
  Company Number: US-AMGEN-USASP2013041161

PATIENT
  Age: 50 Year
  Sex: Male
  Weight: 97.51 kg

DRUGS (1)
  1. ENBREL [Suspect]
     Indication: PSORIATIC ARTHROPATHY
     Dosage: UNK
     Route: 065
     Dates: start: 2005

REACTIONS (5)
  - Tongue discolouration [Unknown]
  - Swollen tongue [Unknown]
  - Nail bed disorder [Unknown]
  - Erythema [Unknown]
  - Glossodynia [Unknown]
